FAERS Safety Report 6887992-6 (Version None)
Quarter: 2010Q3

REPORT INFORMATION
  Report Type: 
  Country: None (occurrence: None)
  Receive Date: 20100730
  Receipt Date: 20100722
  Transmission Date: 20110219
  Serious: Yes (Other)
  Sender: FDA-Public Use
  Company Number: A0871892A

PATIENT
  Age: 71 Year
  Sex: Male

DRUGS (8)
  1. TYKERB [Suspect]
     Indication: GASTRIC CANCER
     Dosage: 4TAB PER DAY
     Route: 048
     Dates: start: 20100713, end: 20100719
  2. ALLOPURINOL [Concomitant]
  3. LISINOPRIL [Concomitant]
  4. WARFARIN SODIUM [Concomitant]
  5. DILTIAZEM [Concomitant]
  6. AVODART [Concomitant]
  7. ASPIRIN [Concomitant]
  8. ACETAMINOPHEN [Concomitant]

REACTIONS (10)
  - BLISTER [None]
  - DYSPNOEA [None]
  - INSOMNIA [None]
  - OEDEMA [None]
  - OEDEMA PERIPHERAL [None]
  - OFF LABEL USE [None]
  - PAIN OF SKIN [None]
  - PLEURAL EFFUSION [None]
  - RASH [None]
  - WEIGHT DECREASED [None]
